FAERS Safety Report 19955212 (Version 1)
Quarter: 2021Q4

REPORT INFORMATION
  Report Type: Spontaneous
  Country: US (occurrence: US)
  Receive Date: 20211014
  Receipt Date: 20211014
  Transmission Date: 20220303
  Serious: No
  Sender: FDA-Public Use
  Company Number: None

PATIENT
  Age: 27 Year
  Sex: Male

DRUGS (1)
  1. NP THYROID [Suspect]
     Active Substance: LEVOTHYROXINE\LIOTHYRONINE
     Indication: Hypothyroidism
     Dosage: ?          QUANTITY:1 TABLET(S);
     Route: 048

REACTIONS (5)
  - Product measured potency issue [None]
  - Therapeutic product effect decreased [None]
  - Condition aggravated [None]
  - Recalled product administered [None]
  - Therapeutic product effect variable [None]

NARRATIVE: CASE EVENT DATE: 20210605
